FAERS Safety Report 9710759 (Version 2)
Quarter: 2013Q4

REPORT INFORMATION
  Report Type: Spontaneous
  Country: US (occurrence: US)
  Receive Date: 20131126
  Receipt Date: 20131126
  Transmission Date: 20140711
  Serious: No
  Sender: FDA-Public Use
  Company Number: US-BRISTOL-MYERS SQUIBB COMPANY-18982561

PATIENT
  Age: 45 Year
  Sex: Female
  Weight: 95.69 kg

DRUGS (3)
  1. BYETTA PEN DISPOSABLE [Suspect]
     Indication: TYPE 2 DIABETES MELLITUS
     Dosage: DOSE 5MCG^S BID FROM THE 10MCG PEN,THERAPY ON 5JUN13
     Route: 058
  2. GLIMEPIRIDE [Concomitant]
     Indication: DIABETES MELLITUS
  3. METFORMIN [Concomitant]
     Indication: DIABETES MELLITUS

REACTIONS (1)
  - Drug prescribing error [Unknown]
